FAERS Safety Report 25451016 (Version 1)
Quarter: 2025Q2

REPORT INFORMATION
  Report Type: Report from Study
  Country: US (occurrence: US)
  Receive Date: 20250618
  Receipt Date: 20250618
  Transmission Date: 20250716
  Serious: No
  Sender: MALLINCKRODT
  Company Number: US-MALLINCKRODT-MNK202503660

PATIENT
  Age: 63 Year
  Sex: Female

DRUGS (2)
  1. CORTICOTROPIN [Suspect]
     Active Substance: CORTICOTROPIN
     Indication: Multiple sclerosis
     Route: 058
     Dates: start: 20250606
  2. CORTICOTROPIN [Suspect]
     Active Substance: CORTICOTROPIN
     Dates: start: 2000

REACTIONS (6)
  - Temperature intolerance [Unknown]
  - Brain fog [Unknown]
  - Visual impairment [Unknown]
  - Cardiac disorder [Unknown]
  - Disturbance in attention [Unknown]
  - Aphasia [Unknown]

NARRATIVE: CASE EVENT DATE: 20250601
